FAERS Safety Report 25149818 (Version 1)
Quarter: 2025Q2

REPORT INFORMATION
  Report Type: Spontaneous
  Country: US (occurrence: None)
  Receive Date: 20250402
  Receipt Date: 20250402
  Transmission Date: 20250717
  Serious: Yes (Hospitalization)
  Sender: FDA-CTU
  Company Number: None

PATIENT
  Age: 58 Year
  Sex: Male
  Weight: 106.59 kg

DRUGS (3)
  1. CYTARABINE [Suspect]
     Active Substance: CYTARABINE
     Dates: end: 20250317
  2. METHOTREXATE [Suspect]
     Active Substance: METHOTREXATE
     Dates: end: 20250314
  3. PONATINIB [Suspect]
     Active Substance: PONATINIB
     Dates: end: 20250330

REACTIONS (9)
  - Pyrexia [None]
  - Dyspnoea [None]
  - Neutropenia [None]
  - Catheter site erythema [None]
  - Catheter site pain [None]
  - Device related infection [None]
  - Cellulitis [None]
  - Bacteraemia [None]
  - White blood cell count decreased [None]

NARRATIVE: CASE EVENT DATE: 20250330
